FAERS Safety Report 5624611-0 (Version None)
Quarter: 2008Q1

REPORT INFORMATION
  Report Type: 
  Country: None (occurrence: None)
  Receive Date: 20080208
  Receipt Date: 20080125
  Transmission Date: 20080703
  Serious: Yes (Death)
  Sender: FDA-Public Use
  Company Number: US022466

PATIENT
  Age: 27 Year
  Sex: Female

DRUGS (2)
  1. FENTANYL [Suspect]
  2. PROPOXYPHENE HYDROCHLORIDE [Suspect]

REACTIONS (1)
  - COMPLETED SUICIDE [None]
